FAERS Safety Report 6860586-4 (Version None)
Quarter: 2010Q3

REPORT INFORMATION
  Report Type: 
  Country: None (occurrence: None)
  Receive Date: 20100720
  Receipt Date: 20100709
  Transmission Date: 20110219
  Serious: Yes (Other)
  Sender: FDA-Public Use
  Company Number: DK-ROCHE-714612

PATIENT
  Sex: Female
  Weight: 80 kg

DRUGS (1)
  1. ROACCUTAN [Suspect]
     Indication: ACNE
     Route: 048
     Dates: start: 19970101, end: 19970501

REACTIONS (3)
  - ANXIETY [None]
  - BORDERLINE PERSONALITY DISORDER [None]
  - DEPRESSION [None]
